FAERS Safety Report 23491351 (Version 1)
Quarter: 2024Q1

REPORT INFORMATION
  Report Type: Spontaneous
  Country: US (occurrence: None)
  Receive Date: 20240207
  Receipt Date: 20240207
  Transmission Date: 20240410
  Serious: No
  Sender: FDA-Public Use
  Company Number: US-ROCHE-3334349

PATIENT
  Age: 14 Year
  Sex: Male
  Weight: 53.3 kg

DRUGS (2)
  1. NUTROPIN AQ [Suspect]
     Active Substance: SOMATROPIN
     Indication: Blood growth hormone
     Dosage: ON 17/APR/2023, LAST DOSE
     Route: 058
     Dates: start: 20201222
  2. NUTROPIN AQ [Suspect]
     Active Substance: SOMATROPIN

REACTIONS (4)
  - Product container issue [Unknown]
  - Device breakage [Unknown]
  - Poor quality product administered [Unknown]
  - No adverse event [Unknown]

NARRATIVE: CASE EVENT DATE: 20230412
